FAERS Safety Report 7850067-3 (Version None)
Quarter: 2011Q4

REPORT INFORMATION
  Report Type: 
  Country: None (occurrence: None)
  Receive Date: 20111024
  Receipt Date: 20111004
  Transmission Date: 20120403
  Serious: Yes (Congenital Anomaly)
  Sender: FDA-Public Use
  Company Number: ADR-UNK-038

PATIENT
  Age: 266 Day
  Sex: Female
  Weight: 2.4 kg

DRUGS (5)
  1. LOPINAVIR AND RITONAVIR (KALETRA, ALUVIA, LPV/R) [Concomitant]
  2. FUZEON [Concomitant]
  3. LAMIVUDINE/ZIDOVUDINE [Suspect]
     Indication: ACQUIRED IMMUNODEFICIENCY SYNDROME
     Dosage: BID + ORAL
     Route: 048
     Dates: start: 20090615
  4. DARUNAVIR (PREZISTA, DRV) [Concomitant]
  5. TENOFOVIR DISOPROXIL FUMARATE AND EMTRICITABINE (TRUVADA, TVD) [Concomitant]

REACTIONS (2)
  - MATERNAL DRUGS AFFECTING FOETUS [None]
  - SMALL FOR DATES BABY [None]
